FAERS Safety Report 25336544 (Version 1)
Quarter: 2025Q2

REPORT INFORMATION
  Report Type: Spontaneous
  Country: AU (occurrence: AU)
  Receive Date: 20250520
  Receipt Date: 20250520
  Transmission Date: 20250716
  Serious: Yes (Other)
  Sender: LEO PHARM
  Company Number: None

PATIENT
  Age: 49 Year
  Sex: Female

DRUGS (7)
  1. TACLONEX [Suspect]
     Active Substance: BETAMETHASONE DIPROPIONATE\CALCIPOTRIENE\CALCIPOTRIENE HYDRATE
     Indication: Psoriasis
  2. ADALIMUMAB [Suspect]
     Active Substance: ADALIMUMAB
     Indication: Product used for unknown indication
  3. SECUKINUMAB [Suspect]
     Active Substance: SECUKINUMAB
     Indication: Product used for unknown indication
  4. ACITRETIN [Suspect]
     Active Substance: ACITRETIN
  5. CYCLOSPORINE [Suspect]
     Active Substance: CYCLOSPORINE
     Indication: Product used for unknown indication
  6. METHOTREXATE [Suspect]
     Active Substance: METHOTREXATE
     Indication: Product used for unknown indication
  7. CELEBREX [Suspect]
     Active Substance: CELECOXIB
     Indication: Product used for unknown indication

REACTIONS (18)
  - Joint effusion [Unknown]
  - Diarrhoea [Unknown]
  - Vulvovaginal erythema [Unknown]
  - Colitis [Unknown]
  - Mouth ulceration [Unknown]
  - Vulvovaginal candidiasis [Unknown]
  - Condition aggravated [Unknown]
  - Ileal ulcer [Unknown]
  - Crohn^s disease [Unknown]
  - Psoriatic arthropathy [Unknown]
  - Vulval disorder [Unknown]
  - Genital ulceration [Unknown]
  - COVID-19 [Unknown]
  - Psoriasis [Unknown]
  - Tongue ulceration [Unknown]
  - Vulvovaginal swelling [Unknown]
  - Vaginal discharge [Unknown]
  - Dactylitis [Unknown]
